FAERS Safety Report 9746879 (Version 1)
Quarter: 2013Q4

REPORT INFORMATION
  Report Type: Spontaneous
  Country: GB (occurrence: GB)
  Receive Date: 20131211
  Receipt Date: 20131211
  Transmission Date: 20140711
  Serious: Yes (Death, Other)
  Sender: FDA-Public Use
  Company Number: GB-BAXTER-2013BAX048284

PATIENT
  Age: 86 Year
  Sex: Female
  Weight: 70 kg

DRUGS (1)
  1. METRONIDAZOLE 500 MG / 100 ML INTRAVENOUS INFUSION [Suspect]
     Indication: ABDOMINAL INFECTION
     Route: 042
     Dates: start: 20131025, end: 20131025

REACTIONS (2)
  - Anaphylactic reaction [Fatal]
  - Drug administration error [Unknown]
